FAERS Safety Report 7000985-3 (Version None)
Quarter: 2010Q3

REPORT INFORMATION
  Report Type: 
  Country: None (occurrence: None)
  Receive Date: 20100920
  Receipt Date: 20080325
  Transmission Date: 20110219
  Serious: Yes (Other)
  Sender: FDA-Public Use
  Company Number: US-ASTRAZENECA-2006UW08393

PATIENT
  Age: 491 Month
  Sex: Male
  Weight: 128.8 kg

DRUGS (9)
  1. SEROQUEL [Suspect]
     Indication: DEPRESSION
     Route: 048
     Dates: start: 20040201
  2. SEROQUEL [Suspect]
     Indication: BIPOLAR DISORDER
     Route: 048
     Dates: start: 20040201
  3. SEROQUEL [Suspect]
     Route: 048
     Dates: start: 20040927
  4. SEROQUEL [Suspect]
     Route: 048
     Dates: start: 20040927
  5. HYDROCHLOROTHIAZIDE [Concomitant]
     Route: 048
     Dates: start: 20040927
  6. MONOPRIL [Concomitant]
     Indication: HYPERTENSION
     Route: 048
     Dates: start: 20040927
  7. LEXAPRO [Concomitant]
     Route: 048
     Dates: start: 20050106
  8. GEMFIBROZIL [Concomitant]
     Dates: start: 20040927
  9. HUMULIN R [Concomitant]
     Dosage: 35 INTERNATIONAL UNITS Q AM AND 30 UNITS AT BEDTIME
     Dates: start: 20050106

REACTIONS (4)
  - DIABETES MELLITUS [None]
  - DIABETIC KETOACIDOSIS [None]
  - TYPE 1 DIABETES MELLITUS [None]
  - TYPE 2 DIABETES MELLITUS [None]
